FAERS Safety Report 17034415 (Version 2)
Quarter: 2019Q4

REPORT INFORMATION
  Report Type: Spontaneous
  Country: FR (occurrence: FR)
  Receive Date: 20191115
  Receipt Date: 20191220
  Transmission Date: 20200122
  Serious: No
  Sender: FDA-Public Use
  Company Number: FR-BEH-2019109406

PATIENT
  Sex: Female

DRUGS (1)
  1. RESPREEZA [Suspect]
     Active Substance: .ALPHA.1-PROTEINASE INHIBITOR HUMAN
     Dosage: 8 GRAM, QOW
     Route: 065
     Dates: start: 20191101

REACTIONS (2)
  - Headache [Recovering/Resolving]
  - Paraesthesia [Recovering/Resolving]
